FAERS Safety Report 4635131-4 (Version None)
Quarter: 2005Q2

REPORT INFORMATION
  Report Type: 
  Country: None (occurrence: None)
  Receive Date: 20050414
  Receipt Date: 20050324
  Transmission Date: 20051028
  Serious: Yes (Other)
  Sender: FDA-Public Use
  Company Number: GB-GLAXOSMITHKLINE-B0376160A

PATIENT
  Age: 48 Year
  Sex: Female

DRUGS (3)
  1. NIQUITIN CQ GUM 4MG [Suspect]
     Indication: SMOKING CESSATION THERAPY
     Route: 062
     Dates: start: 20020101
  2. NIQUITIN CQ GUM 2MG [Suspect]
     Indication: EX-SMOKER
     Route: 002
     Dates: start: 20020101
  3. HORMONE REPLACEMENT THERAPY [Concomitant]
     Indication: HORMONE REPLACEMENT THERAPY

REACTIONS (4)
  - AGITATION [None]
  - DRUG ABUSER [None]
  - STRESS [None]
  - URINARY INCONTINENCE [None]
